FAERS Safety Report 10678816 (Version 1)
Quarter: 2014Q4

REPORT INFORMATION
  Report Type: Spontaneous
  Country: US (occurrence: US)
  Receive Date: 20141229
  Receipt Date: 20141229
  Transmission Date: 20150529
  Serious: No
  Sender: FDA-Public Use
  Company Number: US-PFIZER INC-2014357421

PATIENT
  Age: 60 Year
  Sex: Female
  Weight: 76 kg

DRUGS (2)
  1. CELEBREX [Suspect]
     Active Substance: CELECOXIB
     Dosage: 200 MG, 2X/DAY
     Route: 048
  2. CELEBREX [Suspect]
     Active Substance: CELECOXIB
     Indication: INFLAMMATION
     Dosage: UNK
     Route: 048
     Dates: start: 1994

REACTIONS (2)
  - Wrist fracture [Unknown]
  - Wrist fracture [Unknown]

NARRATIVE: CASE EVENT DATE: 200111
